FAERS Safety Report 16243673 (Version 5)
Quarter: 2019Q3

REPORT INFORMATION
  Report Type: Spontaneous
  Country: US (occurrence: US)
  Receive Date: 20190426
  Receipt Date: 20190823
  Transmission Date: 20191004
  Serious: No
  Sender: FDA-Public Use
  Company Number: US-PFIZER INC-2019119534

PATIENT
  Age: 78 Year
  Sex: Female
  Weight: 74.83 kg

DRUGS (1)
  1. XELJANZ XR [Suspect]
     Active Substance: TOFACITINIB CITRATE
     Indication: PERIPHERAL SWELLING
     Dosage: 11 MG, UNK

REACTIONS (3)
  - Malaise [Not Recovered/Not Resolved]
  - Peripheral swelling [Not Recovered/Not Resolved]
  - Arthritis [Not Recovered/Not Resolved]
